FAERS Safety Report 7591901-4 (Version None)
Quarter: 2011Q3

REPORT INFORMATION
  Report Type: 
  Country: None (occurrence: None)
  Receive Date: 20110706
  Receipt Date: 20110622
  Transmission Date: 20111222
  Serious: Yes (Hospitalization, Other)
  Sender: FDA-Public Use
  Company Number: TR-RANBAXY-2011RR-45780

PATIENT
  Age: 38 Year
  Sex: Male

DRUGS (2)
  1. NAPROXEN [Suspect]
     Indication: SUICIDE ATTEMPT
  2. GLUCOPHEN RETARD [Suspect]
     Indication: SUICIDE ATTEMPT
     Route: 048

REACTIONS (2)
  - OVERDOSE [None]
  - METABOLIC ACIDOSIS [None]
